FAERS Safety Report 9679390 (Version 1)
Quarter: 2013Q4

REPORT INFORMATION
  Report Type: Spontaneous
  Country: US (occurrence: US)
  Receive Date: 20131109
  Receipt Date: 20131109
  Transmission Date: 20140711
  Serious: Yes (Other)
  Sender: FDA-Public Use
  Company Number: US-SANOFI-AVENTIS-2013SA073785

PATIENT
  Sex: Male
  Weight: 77.56 kg

DRUGS (14)
  1. MULTAQ [Suspect]
     Route: 065
  2. ELIQUIS [Suspect]
     Route: 065
  3. WARFARIN [Suspect]
     Route: 065
  4. ATENOLOL [Concomitant]
     Route: 065
  5. ZOCOR [Concomitant]
     Route: 065
  6. GLUCOSAMINE [Concomitant]
     Route: 065
  7. FISH OIL [Concomitant]
     Route: 065
  8. TRAMADOL [Concomitant]
     Route: 065
  9. GABAPENTIN [Concomitant]
     Route: 065
  10. ASPIRIN [Concomitant]
     Route: 065
  11. SYNTHROID [Concomitant]
     Route: 065
  12. RYTHMOL ^BIOSEDRA^ [Concomitant]
     Route: 065
  13. MULTIVITAMINS [Concomitant]
     Route: 065
  14. CRANBERRY EXTRACT [Concomitant]
     Route: 065

REACTIONS (8)
  - Atrial fibrillation [Unknown]
  - Drug ineffective [Unknown]
  - Wrong technique in drug usage process [Unknown]
  - Balance disorder [Unknown]
  - Head injury [Unknown]
  - Haematoma [Unknown]
  - Constipation [Recovered/Resolved]
  - Faeces discoloured [Recovered/Resolved]
